FAERS Safety Report 19489184 (Version 1)
Quarter: 2021Q3

REPORT INFORMATION
  Report Type: Spontaneous
  Country: DE (occurrence: DE)
  Receive Date: 20210703
  Receipt Date: 20210703
  Transmission Date: 20211014
  Serious: Yes (Hospitalization)
  Sender: FDA-Public Use
  Company Number: DE-TEVA-2021-DE-1928408

PATIENT
  Age: 75 Year
  Sex: Male
  Weight: 73 kg

DRUGS (21)
  1. CYCLOPHOSPHAMID [Suspect]
     Active Substance: CYCLOPHOSPHAMIDE
     Dosage: ACCORDING TO THE SCHEME, INJECTION / INFUSION SOLUTION
     Route: 042
  2. BISOPROLOL [Concomitant]
     Active Substance: BISOPROLOL
     Dosage: 5 MILLIGRAM DAILY; 1?0?0?0
     Route: 048
  3. ALLOPURINOL. [Concomitant]
     Active Substance: ALLOPURINOL
     Dosage: 300 MILLIGRAM DAILY; 1?0?0?0
     Route: 048
  4. PANTOPRAZOL [Concomitant]
     Active Substance: PANTOPRAZOLE SODIUM
     Dosage: 40 MILLIGRAM DAILY; 1?0?0?0
     Route: 048
  5. BORTEZOMIB. [Suspect]
     Active Substance: BORTEZOMIB
     Dosage: ACCORDING TO THE SCHEME, INJECTION / INFUSION SOLUTION
     Route: 042
  6. ACETYLSALICYLSAURE [Concomitant]
     Active Substance: ASPIRIN
     Dosage: 100 MILLIGRAM DAILY; 0?1?0?0
     Route: 048
  7. METAMIZOL [Concomitant]
     Active Substance: METAMIZOLE SODIUM
     Dosage: 2000 MILLIGRAM DAILY;  1?1?1?1
     Route: 048
  8. INSPIOLTO RESPIMAT 2,5MIKROGRAMM/2,5MIKROGRAMM [Concomitant]
     Dosage: 2 DOSAGE FORMS DAILY; 2?0?0?0, METERED DOSE INHALER
     Route: 055
  9. ZOPICLON [Concomitant]
     Active Substance: ZOPICLONE
     Dosage: 7.5 MILLIGRAM DAILY;  0?0?0?1
     Route: 048
  10. DOXORUBICIN [Suspect]
     Active Substance: DOXORUBICIN
     Dosage: ACCORDING TO THE SCHEME, INJECTION / INFUSION SOLUTION
     Route: 042
  11. LIPEGFILGRASTIM [Suspect]
     Active Substance: LIPEGFILGRASTIM
     Dosage: ACCORDING TO THE SCHEME, INJECTION / INFUSION SOLUTION
     Route: 042
  12. COTRIMOXAZOL AL [Concomitant]
     Active Substance: SULFAMETHOXAZOLE\TRIMETHOPRIM
     Dosage: 960 MG, MONDAY WEDNESDAY FRIDAY ONE TABLET,
     Route: 048
  13. ACICLOVIR [Concomitant]
     Active Substance: ACYCLOVIR
     Dosage: 6 DOSAGE FORMS DAILY; 200 MG, 2?2?2?0
     Route: 048
  14. FUROSEMID [Concomitant]
     Active Substance: FUROSEMIDE
     Dosage: 40 MILLIGRAM DAILY; 1?0?0?0
     Route: 048
  15. INDISCHE FLOHSAMENSCHALEN [Concomitant]
     Dosage: 3 DOSAGE FORMS DAILY; 3.25 | 5 G, IF NECESSARY ONE SACHET 3 TIMES PER DAY, SACHET
     Route: 048
  16. RITUXIMAB. [Suspect]
     Active Substance: RITUXIMAB
     Dosage: ACCORDING TO THE SCHEME, INJECTION / INFUSION SOLUTION
     Route: 042
  17. PREDNISOLON [Suspect]
     Active Substance: PREDNISOLONE
     Dosage: ACCORDING TO THE SCHEME, INJECTION / INFUSION SOLUTION
     Route: 042
  18. SIMVASTATIN. [Concomitant]
     Active Substance: SIMVASTATIN
     Dosage: 20 MILLIGRAM DAILY; 0?0?1?0
     Route: 048
  19. MORPHIN [Concomitant]
     Active Substance: MORPHINE
     Dosage: 20 MG, 8 DROPS IN THE MORNING IF NECESSARY
     Route: 048
  20. AMPHOTERICIN B 50MG [Concomitant]
     Dosage: 4 DOSAGE FORMS DAILY; 1?1?1?1
     Route: 048
  21. RAMIPRIL. [Concomitant]
     Active Substance: RAMIPRIL
     Dosage: 10 MILLIGRAM DAILY; 1?0?1?0
     Route: 048

REACTIONS (4)
  - Headache [Unknown]
  - Herpes zoster [Unknown]
  - Pyrexia [Unknown]
  - General physical health deterioration [Unknown]
